FAERS Safety Report 25616420 (Version 2)
Quarter: 2025Q3

REPORT INFORMATION
  Report Type: Spontaneous
  Country: EU (occurrence: EU)
  Receive Date: 20250729
  Receipt Date: 20250821
  Transmission Date: 20251021
  Serious: Yes (Death, Other)
  Sender: MACLEODS
  Company Number: EU-MACLEODS PHARMA-MAC2025054289

PATIENT

DRUGS (4)
  1. METHIMAZOLE [Suspect]
     Active Substance: METHIMAZOLE
     Indication: Hyperthyroidism
     Route: 065
  2. METHIMAZOLE [Suspect]
     Active Substance: METHIMAZOLE
  3. LEVOTHYROXINE [Suspect]
     Active Substance: LEVOTHYROXINE
     Indication: Hypothyroidism
     Route: 065
  4. Ipilimumab/nivolumab [Concomitant]
     Route: 065

REACTIONS (2)
  - Death [Fatal]
  - Hypothyroidism [Recovered/Resolved]
